FAERS Safety Report 23077313 (Version 1)
Quarter: 2023Q4

REPORT INFORMATION
  Report Type: Report from Study
  Country: DE (occurrence: DE)
  Receive Date: 20231018
  Receipt Date: 20231018
  Transmission Date: 20240110
  Serious: Yes (Hospitalization)
  Sender: FDA-Public Use
  Company Number: DE-002147023-NVSC2023DE098021

PATIENT
  Sex: Female

DRUGS (6)
  1. ETANERCEPT [Suspect]
     Active Substance: ETANERCEPT
     Indication: Product used for unknown indication
     Dosage: 50 MG
     Route: 065
     Dates: start: 202203, end: 202207
  2. ETANERCEPT [Suspect]
     Active Substance: ETANERCEPT
     Dosage: 25 MG
     Route: 065
     Dates: start: 202210, end: 202302
  3. SIMPONI [Suspect]
     Active Substance: GOLIMUMAB
     Indication: Product used for unknown indication
     Dosage: 50 MG
     Route: 065
     Dates: start: 201601, end: 201603
  4. RINVOQ [Suspect]
     Active Substance: UPADACITINIB
     Indication: Product used for unknown indication
     Dosage: 15 MG
     Route: 065
     Dates: start: 202007, end: 202012
  5. ETANERCEPT [Suspect]
     Active Substance: ETANERCEPT
     Dosage: 50 MG
     Route: 065
     Dates: start: 201810, end: 201904
  6. ETANERCEPT [Suspect]
     Active Substance: ETANERCEPT
     Dosage: 50 MG
     Route: 065
     Dates: start: 202202, end: 202203

REACTIONS (7)
  - Spinal osteoarthritis [Unknown]
  - Cervicobrachial syndrome [Unknown]
  - Intervertebral disc protrusion [Unknown]
  - Pain [Unknown]
  - Pyrexia [Unknown]
  - COVID-19 [Unknown]
  - Cough [Unknown]

NARRATIVE: CASE EVENT DATE: 20220428
